FAERS Safety Report 17649726 (Version 3)
Quarter: 2020Q2

REPORT INFORMATION
  Report Type: Spontaneous
  Country: US (occurrence: US)
  Receive Date: 20200409
  Receipt Date: 20200415
  Transmission Date: 20200713
  Serious: No
  Sender: FDA-Public Use
  Company Number: US-PFIZER INC-2020144175

PATIENT
  Age: 62 Year
  Sex: Female
  Weight: 63.5 kg

DRUGS (3)
  1. NICOTROL [Suspect]
     Active Substance: NICOTINE
     Indication: SMOKING CESSATION THERAPY
     Dosage: 10MG.INSTILL 1 SPRAY IN EACH NOSTRIL 1-5 TIMES PER HOUR, MAX OF 5 TIMES PER HOUR, FOR 8 WEEKS )
     Route: 045
     Dates: start: 20200327
  2. NICOTROL [Suspect]
     Active Substance: NICOTINE
     Dosage: UNK
     Dates: start: 20200328
  3. NICOTROL [Suspect]
     Active Substance: NICOTINE
     Dosage: UNK(SHE USE 5 SPRAYS UP EACH NOSTRIL) (SHE USES 2-3 SPRAYS PER HOUR NOW)
     Route: 045

REACTIONS (3)
  - Body height decreased [Unknown]
  - Intentional product use issue [Unknown]
  - Product complaint [Unknown]

NARRATIVE: CASE EVENT DATE: 20200411
